FAERS Safety Report 7272075-6 (Version None)
Quarter: 2011Q1

REPORT INFORMATION
  Report Type: 
  Country: None (occurrence: None)
  Receive Date: 20110203
  Receipt Date: 20110126
  Transmission Date: 20110831
  Serious: Yes (Other)
  Sender: FDA-Public Use
  Company Number: AU-AMGEN-QUU413893

PATIENT
  Age: 53 Year
  Sex: Male
  Weight: 50 kg

DRUGS (12)
  1. CALCITRIOL [Concomitant]
     Dosage: 0.25 A?G, QD
  2. LEVOTHYROXINE SODIUM [Concomitant]
     Dosage: 50 A?G, QD
  3. SODIBIC [Concomitant]
     Dosage: 840 MG, TID
  4. PREDNISOLONE [Concomitant]
     Dosage: 7 MG, QD
  5. MYCOPHENOLATE MOFETIL [Concomitant]
     Dosage: 500 MG, BID
  6. ASPIRIN [Concomitant]
     Dosage: 100 MG, QD
  7. EPOETIN BETA [Concomitant]
  8. ARANESP [Suspect]
     Indication: RENAL FAILURE CHRONIC
     Dosage: 150 A?G, QWK
     Route: 058
     Dates: start: 20080901
  9. TACROLIMUS [Concomitant]
     Dosage: 3 MG, BID
  10. OSTELIN                            /00107901/ [Concomitant]
     Dosage: 1000 IU, QD
  11. CEPHALEXIN [Concomitant]
     Dosage: 250 MG, QD
  12. PANTOPRAZOLE [Concomitant]
     Dosage: 40 MG, QD

REACTIONS (5)
  - DIARRHOEA INFECTIOUS [None]
  - APLASIA PURE RED CELL [None]
  - ULCER [None]
  - DRUG INEFFECTIVE [None]
  - PANCYTOPENIA [None]
